FAERS Safety Report 9880657 (Version 2)
Quarter: 2014Q1

REPORT INFORMATION
  Report Type: Spontaneous
  Country: US (occurrence: US)
  Receive Date: 20140207
  Receipt Date: 20140225
  Transmission Date: 20141002
  Serious: Yes (Other)
  Sender: FDA-Public Use
  Company Number: US-AMGEN-USASP2014008034

PATIENT
  Age: 53 Year
  Sex: Female
  Weight: 102.18 kg

DRUGS (13)
  1. ENBREL [Suspect]
     Indication: RHEUMATOID ARTHRITIS
     Dosage: UNK
     Route: 065
  2. APLISOL [Concomitant]
     Dosage: 5 TUBERCULIN UNIT/0.1ML, UNK
     Route: 023
     Dates: start: 20120410
  3. CELESTONE SOLUSPAN [Concomitant]
     Dosage: 6 MG/ML, UNK
     Dates: start: 20130923
  4. FOLIC ACID [Concomitant]
     Dosage: 1 MG, QD
     Route: 048
     Dates: start: 20131230
  5. HUMIRA [Concomitant]
     Dosage: 40 MG/0.8ML, Q2WK
     Route: 058
     Dates: start: 20130919
  6. IBUPROFEN [Concomitant]
     Dosage: UNK
     Dates: start: 20121106
  7. IBUPROFEN [Concomitant]
     Dosage: 600 MG, BID
     Route: 048
     Dates: start: 20121219
  8. LYRICA [Concomitant]
     Dosage: 75 MG, QD
     Route: 048
     Dates: start: 20140110
  9. METHOTREXATE [Concomitant]
     Dosage: 2.5 MG, QWK 4 TABLETS
     Route: 048
     Dates: start: 20131031
  10. METHOTREXATE [Concomitant]
     Dosage: 2.5 MG, QWK 4 TABLETS
     Route: 048
     Dates: start: 20140110
  11. OMEPRAZOLE [Concomitant]
     Indication: GASTROOESOPHAGEAL REFLUX DISEASE
     Dosage: 40 MG DR, QD 1 CAPSULE, FOR 30 DAYS
     Route: 048
     Dates: start: 20121219
  12. TRAMADOL [Concomitant]
     Dosage: 50 MG, TID 1 TABLET FOR 30 DAYS
     Route: 048
     Dates: start: 20121115
  13. VITAMIN D3 [Concomitant]
     Dosage: 2000 UNIT, QD
     Dates: start: 20140110

REACTIONS (19)
  - Immunosuppression [Unknown]
  - Insomnia [Unknown]
  - Pruritus generalised [Unknown]
  - Bursitis [Unknown]
  - Restless legs syndrome [Unknown]
  - Pain in extremity [Unknown]
  - Musculoskeletal stiffness [Unknown]
  - Onychomadesis [Unknown]
  - Urinary incontinence [Unknown]
  - Sleep disorder [Unknown]
  - Arthralgia [Unknown]
  - Local swelling [Unknown]
  - Poor quality sleep [Unknown]
  - Fatigue [Unknown]
  - Rheumatoid arthritis [Unknown]
  - Rash [Unknown]
  - Synovitis [Unknown]
  - Tenosynovitis [Unknown]
  - Drug ineffective [Unknown]
